FAERS Safety Report 7997228-0 (Version None)
Quarter: 2011Q4

REPORT INFORMATION
  Report Type: 
  Country: None (occurrence: None)
  Receive Date: 20111221
  Receipt Date: 20111219
  Transmission Date: 20120403
  Serious: Yes (Death, Other)
  Sender: FDA-Public Use
  Company Number: PHFR2011GB006813

PATIENT
  Sex: Female

DRUGS (3)
  1. VENLAFAXINE [Concomitant]
     Indication: SCHIZOAFFECTIVE DISORDER
     Dosage: 75 MG, UNK
     Route: 048
  2. LITHIUM CARBONATE [Concomitant]
     Indication: SCHIZOAFFECTIVE DISORDER
     Dosage: 200 MG, UNK
     Route: 048
  3. CLOZARIL [Suspect]
     Indication: SCHIZOPHRENIA
     Dosage: 50 MG, BID
     Route: 048
     Dates: start: 20060301

REACTIONS (7)
  - HAEMATEMESIS [None]
  - ABDOMINAL NEOPLASM [None]
  - ABDOMINAL DISTENSION [None]
  - VOMITING [None]
  - PALLOR [None]
  - ASTHENIA [None]
  - METASTATIC NEOPLASM [None]
